FAERS Safety Report 13070105 (Version 2)
Quarter: 2017Q1

REPORT INFORMATION
  Report Type: Report from Study
  Country: US (occurrence: US)
  Receive Date: 20161228
  Receipt Date: 20170126
  Transmission Date: 20170428
  Serious: Yes (Hospitalization)
  Sender: FDA-Public Use
  Company Number: US-ACTELION-A-NJ2016-140615

PATIENT
  Age: 66 Year
  Sex: Male

DRUGS (9)
  1. OPSUMIT [Suspect]
     Active Substance: MACITENTAN
     Indication: PULMONARY ARTERIAL HYPERTENSION
     Dosage: 10 MG, QD
     Route: 048
     Dates: start: 20160707
  2. TORSEMIDE. [Concomitant]
     Active Substance: TORSEMIDE
     Dosage: 5 MG, M-W-F
  3. UPTRAVI [Suspect]
     Active Substance: SELEXIPAG
     Dosage: 400 MCG, BID
     Route: 048
  4. UPTRAVI [Suspect]
     Active Substance: SELEXIPAG
     Dosage: 1600 MCG, QD
     Route: 048
  5. VERAPAMIL [Concomitant]
     Active Substance: VERAPAMIL HYDROCHLORIDE
  6. UPTRAVI [Suspect]
     Active Substance: SELEXIPAG
     Dosage: 200 MCG, BID
     Route: 048
     Dates: start: 20160715
  7. UPTRAVI [Suspect]
     Active Substance: SELEXIPAG
     Indication: PULMONARY ARTERIAL HYPERTENSION
     Dosage: 800 MCG, BID
     Route: 048
  8. SPIRONOLACTONE. [Concomitant]
     Active Substance: SPIRONOLACTONE
     Dosage: 25 MG, QD
  9. DIGOXIN. [Concomitant]
     Active Substance: DIGOXIN
     Dosage: 250 MCG, QD

REACTIONS (29)
  - Epistaxis [Unknown]
  - Headache [Unknown]
  - Feeling abnormal [Unknown]
  - Arthralgia [Unknown]
  - Abdominal discomfort [Unknown]
  - Blood pressure decreased [Unknown]
  - Aspiration joint [Unknown]
  - Oedema [Unknown]
  - Hereditary haemorrhagic telangiectasia [Unknown]
  - Anaemia [Unknown]
  - Nasal operation [Unknown]
  - Pain in jaw [Unknown]
  - Muscle spasms [Unknown]
  - Diarrhoea [Unknown]
  - Blood pressure diastolic decreased [Unknown]
  - Somnolence [Unknown]
  - Feeling hot [Unknown]
  - Red blood cell count decreased [Unknown]
  - Myalgia [Unknown]
  - Abasia [Unknown]
  - Blood iron decreased [Unknown]
  - Pain in extremity [Unknown]
  - Cardiac failure congestive [Unknown]
  - Flushing [Unknown]
  - Fatigue [Unknown]
  - Infusion [Unknown]
  - Muscular weakness [Unknown]
  - Joint effusion [Unknown]
  - Dizziness [Unknown]

NARRATIVE: CASE EVENT DATE: 20160908
